FAERS Safety Report 26123119 (Version 2)
Quarter: 2025Q4

REPORT INFORMATION
  Report Type: Spontaneous
  Country: US (occurrence: US)
  Receive Date: 20251204
  Receipt Date: 20251209
  Transmission Date: 20260117
  Serious: Yes (Hospitalization)
  Sender: BIOMARIN
  Company Number: US-BIOMARINAP-US-2025-170377

PATIENT
  Age: 9 Year
  Sex: Female
  Weight: 19.6 kg

DRUGS (2)
  1. NAGLAZYME [Suspect]
     Active Substance: GALSULFASE
     Indication: Mucopolysaccharidosis VI
     Dosage: 15 MILLIGRAM, QW
     Dates: start: 202504
  2. LIDOCAINE\PRILOCAINE [Concomitant]
     Active Substance: LIDOCAINE\PRILOCAINE
     Indication: Product used for unknown indication

REACTIONS (3)
  - Device leakage [Recovered/Resolved]
  - Catheter site erythema [Recovered/Resolved]
  - Catheter site pain [Recovered/Resolved]

NARRATIVE: CASE EVENT DATE: 20251118
